FAERS Safety Report 17326452 (Version 5)
Quarter: 2020Q4

REPORT INFORMATION
  Report Type: Report from Study
  Country: US (occurrence: US)
  Receive Date: 20200127
  Receipt Date: 20201104
  Transmission Date: 20210113
  Serious: No
  Sender: FDA-Public Use
  Company Number: NVSC2020US019014

PATIENT
  Age: 72 Year
  Sex: Female

DRUGS (2)
  1. ENTRESTO [Suspect]
     Active Substance: SACUBITRIL\VALSARTAN
     Indication: CARDIAC FAILURE
     Dosage: 0.5 DF (49 MG  SACUBITRIL/ 51MG VALSARTAN) BID
     Route: 048
  2. ENTRESTO [Suspect]
     Active Substance: SACUBITRIL\VALSARTAN
     Indication: CARDIAC FAILURE

REACTIONS (9)
  - Arthralgia [Unknown]
  - Back pain [Unknown]
  - Product prescribing error [Unknown]
  - Weight decreased [Unknown]
  - Depression [Unknown]
  - Joint swelling [Unknown]
  - Peripheral swelling [Unknown]
  - Wrong technique in product usage process [Unknown]
  - Hypotension [Unknown]
